FAERS Safety Report 12160141 (Version 1)
Quarter: 2016Q1

REPORT INFORMATION
  Report Type: Spontaneous
  Country: FR (occurrence: FR)
  Receive Date: 20160308
  Receipt Date: 20160308
  Transmission Date: 20160526
  Serious: Yes (Hospitalization)
  Sender: FDA-Public Use
  Company Number: FR-OCTA-ALB00316FR

PATIENT
  Age: 49 Year
  Sex: Female

DRUGS (1)
  1. ALBUNORM [Suspect]
     Active Substance: ALBUMIN (HUMAN)
     Indication: ABDOMINAL CAVITY DRAINAGE
     Route: 042
     Dates: start: 20160211, end: 20160211

REACTIONS (7)
  - Rash [None]
  - Face oedema [Recovered/Resolved]
  - Chills [Recovered/Resolved]
  - Infusion related reaction [Recovered/Resolved]
  - Tachycardia [Recovered/Resolved]
  - Rash [Recovered/Resolved]
  - Body temperature increased [Recovered/Resolved]

NARRATIVE: CASE EVENT DATE: 20160211
